FAERS Safety Report 6888709-1 (Version None)
Quarter: 2010Q3

REPORT INFORMATION
  Report Type: 
  Country: None (occurrence: None)
  Receive Date: 20100730
  Receipt Date: 20071105
  Transmission Date: 20110219
  Serious: No
  Sender: FDA-Public Use
  Company Number: US-PFIZER INC-2007076124

PATIENT
  Sex: Female
  Weight: 71.4 kg

DRUGS (6)
  1. LIPITOR [Suspect]
     Indication: BLOOD CHOLESTEROL INCREASED
     Dates: start: 19960101
  2. CARDIZEM CD [Concomitant]
  3. LOPRESSOR [Concomitant]
  4. ESTRADIOL [Concomitant]
  5. ACETYLSALICYLIC ACID SRT [Concomitant]
  6. MULTI-VITAMINS [Concomitant]

REACTIONS (1)
  - DRUG INEFFECTIVE [None]
